FAERS Safety Report 4819444-9 (Version None)
Quarter: 2005Q4

REPORT INFORMATION
  Report Type: 
  Country: None (occurrence: None)
  Receive Date: 20051103
  Receipt Date: 20051024
  Transmission Date: 20060501
  Serious: Yes (Death)
  Sender: FDA-Public Use
  Company Number: US-JNJFOC-20051005573

PATIENT
  Sex: Female
  Weight: 136.08 kg

DRUGS (2)
  1. TOPAMAX [Suspect]
     Route: 048
  2. DILANTIN [Concomitant]
     Route: 048

REACTIONS (1)
  - CEREBROVASCULAR ACCIDENT [None]
